FAERS Safety Report 4485312-8 (Version None)
Quarter: 2004Q3

REPORT INFORMATION
  Report Type: 
  Country: None (occurrence: None)
  Receive Date: 20040921
  Receipt Date: 20040512
  Transmission Date: 20050211
  Serious: Yes (Hospitalization)
  Sender: FDA-Public Use
  Company Number: 163-20785-04050370

PATIENT
  Age: 64 Year
  Sex: Female

DRUGS (12)
  1. THALOMID [Suspect]
     Indication: MULTIPLE MYELOMA
     Dosage: 50 MG, DAILY, ORAL; 400 MG, DAILY, ORAL; 50 MG, DAILY, ORAL; 50 MG, DAILY, ORAL; 100 MG, DAILY, ORAL
     Route: 048
     Dates: start: 20030109, end: 20030304
  2. THALOMID [Suspect]
     Indication: MULTIPLE MYELOMA
     Dosage: 50 MG, DAILY, ORAL; 400 MG, DAILY, ORAL; 50 MG, DAILY, ORAL; 50 MG, DAILY, ORAL; 100 MG, DAILY, ORAL
     Route: 048
     Dates: start: 20030511, end: 20030627
  3. THALOMID [Suspect]
     Indication: MULTIPLE MYELOMA
     Dosage: 50 MG, DAILY, ORAL; 400 MG, DAILY, ORAL; 50 MG, DAILY, ORAL; 50 MG, DAILY, ORAL; 100 MG, DAILY, ORAL
     Route: 048
     Dates: start: 20030717, end: 20030816
  4. THALOMID [Suspect]
     Indication: MULTIPLE MYELOMA
     Dosage: 50 MG, DAILY, ORAL; 400 MG, DAILY, ORAL; 50 MG, DAILY, ORAL; 50 MG, DAILY, ORAL; 100 MG, DAILY, ORAL
     Route: 048
     Dates: start: 20030919, end: 20040122
  5. THALOMID [Suspect]
     Indication: MULTIPLE MYELOMA
     Dosage: 50 MG, DAILY, ORAL; 400 MG, DAILY, ORAL; 50 MG, DAILY, ORAL; 50 MG, DAILY, ORAL; 100 MG, DAILY, ORAL
     Route: 048
     Dates: start: 20040101
  6. ACYCLOVIR [Concomitant]
  7. FOLIC ACID [Concomitant]
  8. LOVENOX [Concomitant]
  9. CELEXA [Concomitant]
  10. ESTRATEST [Concomitant]
  11. PROMETRIUM [Concomitant]
  12. SENNA (SENNA) [Concomitant]

REACTIONS (1)
  - PNEUMOTHORAX [None]
